FAERS Safety Report 7556662-3 (Version None)
Quarter: 2011Q2

REPORT INFORMATION
  Report Type: 
  Country: None (occurrence: None)
  Receive Date: 20110610
  Receipt Date: 20110607
  Transmission Date: 20111010
  Serious: Yes (Life-Threatening)
  Sender: FDA-Public Use
  Company Number: 2011SP018252

PATIENT
  Age: 39 Year
  Sex: Female

DRUGS (13)
  1. GASMOTIN [Concomitant]
  2. TEMODAL [Suspect]
     Indication: CEREBELLAR TUMOUR
     Dosage: ;PO
     Route: 048
  3. EFFORTIL [Concomitant]
  4. CLONAZEPAM [Concomitant]
  5. PURSENNID (SENNOSIDE) [Concomitant]
  6. ARTANE [Concomitant]
  7. MUCODYNE [Concomitant]
  8. MUCOSOLVAN  /00546002/ [Concomitant]
  9. LANSOPRAZOLE [Concomitant]
  10. DECADRON /00016002/ [Concomitant]
  11. COTRIM [Concomitant]
  12. PANTOSIN [Concomitant]
  13. MIYA BM [Concomitant]

REACTIONS (1)
  - UPPER AIRWAY OBSTRUCTION [None]
